FAERS Safety Report 8479308-9 (Version None)
Quarter: 2012Q2

REPORT INFORMATION
  Report Type: 
  Country: None (occurrence: None)
  Receive Date: 20120629
  Receipt Date: 20120626
  Transmission Date: 20120825
  Serious: Yes (Hospitalization)
  Sender: FDA-Public Use
  Company Number: BE-GLAXOSMITHKLINE-B0809690A

PATIENT
  Sex: Female
  Weight: 66 kg

DRUGS (3)
  1. TAXOTERE [Suspect]
     Indication: BREAST CANCER
     Dosage: 100MG CYCLIC
     Route: 042
     Dates: start: 20120606
  2. TYVERB [Suspect]
     Indication: BREAST CANCER
     Dosage: 1000MG PER DAY
     Route: 048
     Dates: start: 20120606
  3. HERCEPTIN [Suspect]
     Indication: BREAST CANCER
     Dosage: 130MG CYCLIC
     Route: 042
     Dates: start: 20120606

REACTIONS (1)
  - FEBRILE NEUTROPENIA [None]
